FAERS Safety Report 18587270 (Version 2)
Quarter: 2020Q4

REPORT INFORMATION
  Report Type: Report from Study
  Country: US (occurrence: US)
  Receive Date: 20201207
  Receipt Date: 20201217
  Transmission Date: 20210114
  Serious: Yes (Hospitalization)
  Sender: FDA-Public Use
  Company Number: NVSC2020US316637

PATIENT
  Age: 52 Year
  Sex: Female

DRUGS (1)
  1. KESIMPTA [Suspect]
     Active Substance: OFATUMUMAB
     Indication: MULTIPLE SCLEROSIS
     Dosage: 20 MG, QMO
     Route: 058
     Dates: start: 20201119

REACTIONS (11)
  - Swelling [Recovered/Resolved]
  - Nasopharyngitis [Recovered/Resolved]
  - Device malfunction [Unknown]
  - Chills [Recovered/Resolved]
  - Foot fracture [Recovered/Resolved]
  - Pain [Recovered/Resolved]
  - Incorrect dose administered [Unknown]
  - Vomiting [Recovered/Resolved]
  - Mobility decreased [Recovered/Resolved]
  - Pyrexia [Recovered/Resolved]
  - Muscle contracture [Recovered/Resolved]

NARRATIVE: CASE EVENT DATE: 20201119
